FAERS Safety Report 14091340 (Version 1)
Quarter: 2017Q4

REPORT INFORMATION
  Report Type: Other
  Country: US (occurrence: US)
  Receive Date: 20171016
  Receipt Date: 20171016
  Transmission Date: 20180321
  Serious: Yes (Hospitalization)
  Sender: FDA-Public Use
  Company Number: US-VELOXIS PHARMACEUTICALS-2030166

PATIENT
  Age: 26 Year
  Sex: Female

DRUGS (8)
  1. ACYCLOVIR. [Concomitant]
     Active Substance: ACYCLOVIR
  2. LORAZEPAM. [Concomitant]
     Active Substance: LORAZEPAM
  3. FLUCONAZOLE. [Concomitant]
     Active Substance: FLUCONAZOLE
  4. DAPSONE. [Concomitant]
     Active Substance: DAPSONE
  5. ENVARSUS XR [Suspect]
     Active Substance: TACROLIMUS
     Indication: STEM CELL TRANSPLANT
     Route: 065
  6. SORAFENIB [Concomitant]
     Active Substance: SORAFENIB
  7. ONDANSETRON [Concomitant]
     Active Substance: ONDANSETRON
  8. RANITIDINE. [Concomitant]
     Active Substance: RANITIDINE

REACTIONS (2)
  - Bacteraemia [Recovered/Resolved]
  - Intentional product use issue [Unknown]
